FAERS Safety Report 22293731 (Version 1)
Quarter: 2023Q2

REPORT INFORMATION
  Report Type: Spontaneous
  Country: US (occurrence: None)
  Receive Date: 20230504
  Receipt Date: 20230504
  Transmission Date: 20230722
  Serious: Yes (Life-Threatening, Hospitalization, Disabling, Other)
  Sender: FDA-Public Use
  Company Number: None

PATIENT
  Age: 31 Year
  Sex: Female
  Weight: 81.65 kg

DRUGS (1)
  1. LILETTA [Suspect]
     Active Substance: LEVONORGESTREL

REACTIONS (4)
  - Pregnancy with contraceptive device [None]
  - Ectopic pregnancy [None]
  - Fallopian tube perforation [None]
  - Internal haemorrhage [None]

NARRATIVE: CASE EVENT DATE: 20230420
